FAERS Safety Report 19892959 (Version 2)
Quarter: 2021Q3

REPORT INFORMATION
  Report Type: Spontaneous
  Country: US (occurrence: US)
  Receive Date: 20210928
  Receipt Date: 20210930
  Transmission Date: 20211014
  Serious: No
  Sender: FDA-Public Use
  Company Number: US-SA-2021SA308597

PATIENT
  Age: 46 Year
  Sex: Male

DRUGS (1)
  1. DUPILUMAB [Suspect]
     Active Substance: DUPILUMAB
     Indication: NASAL POLYPS
     Dosage: 300 MG, QOW
     Dates: start: 20210818

REACTIONS (5)
  - Device breakage [Unknown]
  - Nasal congestion [Unknown]
  - Skin swelling [Unknown]
  - Injection site haemorrhage [Unknown]
  - Nasal inflammation [Unknown]

NARRATIVE: CASE EVENT DATE: 20210915
